FAERS Safety Report 9013626 (Version 1)
Quarter: 2013Q1

REPORT INFORMATION
  Report Type: Spontaneous
  Country: US (occurrence: None)
  Receive Date: 20130109
  Receipt Date: 20130109
  Transmission Date: 20140127
  Serious: No
  Sender: FDA-Public Use
  Company Number: None

PATIENT
  Age: 51 Year
  Sex: Male
  Weight: 104.3 kg

DRUGS (1)
  1. WARFARIN [Suspect]
     Indication: PULMONARY EMBOLISM
     Dosage: 7.5 MG OTHER PO
     Route: 048
     Dates: start: 20121114, end: 20121205

REACTIONS (3)
  - Rectal haemorrhage [None]
  - Anaemia [None]
  - International normalised ratio abnormal [None]
